FAERS Safety Report 6815803-3 (Version None)
Quarter: 2010Q3

REPORT INFORMATION
  Report Type: 
  Country: None (occurrence: None)
  Receive Date: 20100705
  Receipt Date: 20100630
  Transmission Date: 20110219
  Serious: Yes (Hospitalization, Disabling, Other)
  Sender: FDA-Public Use
  Company Number: US-MERCK-0908USA02147

PATIENT
  Age: 59 Year
  Sex: Female
  Weight: 80 kg

DRUGS (8)
  1. FOSAMAX [Suspect]
     Indication: OSTEOPOROSIS
     Route: 048
     Dates: start: 20020530, end: 20061101
  2. PREMARIN [Concomitant]
     Route: 065
     Dates: start: 19800101
  3. LEXAPRO [Concomitant]
     Indication: DEPRESSION
     Route: 065
     Dates: start: 19900101, end: 20060101
  4. TRIAZOLAM [Concomitant]
     Indication: SLEEP DISORDER
     Route: 065
     Dates: start: 19950101
  5. SINGULAIR [Concomitant]
     Indication: MULTIPLE ALLERGIES
     Route: 065
     Dates: start: 20010101
  6. CITALOPRAM [Concomitant]
     Indication: DEPRESSION
     Route: 065
     Dates: start: 20060101
  7. UNISOM (DIPHENHYDRAMINE HYDROCHLORIDE) [Concomitant]
     Indication: SLEEP DISORDER THERAPY
     Route: 065
  8. PREVACID [Concomitant]
     Route: 065

REACTIONS (55)
  - ABDOMINAL PAIN [None]
  - ABSCESS [None]
  - ABSCESS ORAL [None]
  - ARTERIOSCLEROSIS [None]
  - ARTHRALGIA [None]
  - ARTHROPATHY [None]
  - ATELECTASIS [None]
  - BACK PAIN [None]
  - BLOOD GLUCOSE DECREASED [None]
  - BONE DENSITY DECREASED [None]
  - BONE DISORDER [None]
  - CHEST DISCOMFORT [None]
  - CHEST PAIN [None]
  - CHRONIC SINUSITIS [None]
  - COUGH [None]
  - DENTAL CARIES [None]
  - DENTAL FISTULA [None]
  - DENTAL NECROSIS [None]
  - DEPRESSION [None]
  - DEVICE FAILURE [None]
  - DIARRHOEA [None]
  - EXOSTOSIS [None]
  - FIBROMYALGIA [None]
  - FISTULA DISCHARGE [None]
  - GASTROINTESTINAL DISORDER [None]
  - GINGIVAL BLEEDING [None]
  - GINGIVAL DISORDER [None]
  - GINGIVAL INFECTION [None]
  - GINGIVAL PAIN [None]
  - GINGIVAL SWELLING [None]
  - GINGIVAL ULCERATION [None]
  - HEADACHE [None]
  - HYPOTENSION [None]
  - IMPAIRED HEALING [None]
  - IMPLANT SITE INFLAMMATION [None]
  - IMPLANT SITE PAIN [None]
  - JOINT EFFUSION [None]
  - MYALGIA [None]
  - NECK PAIN [None]
  - ORAL DISORDER [None]
  - ORAL INFECTION [None]
  - OROPHARYNGEAL PAIN [None]
  - OSTEONECROSIS OF JAW [None]
  - PAIN IN JAW [None]
  - PALLOR [None]
  - POSTOPERATIVE WOUND INFECTION [None]
  - STRESS URINARY INCONTINENCE [None]
  - SUTURE RELATED COMPLICATION [None]
  - TEMPOROMANDIBULAR JOINT SYNDROME [None]
  - TOOTH DISORDER [None]
  - TOOTH FRACTURE [None]
  - TOOTH INFECTION [None]
  - TRISMUS [None]
  - ULCER [None]
  - URINARY TRACT INFECTION [None]
